FAERS Safety Report 8529689-2 (Version None)
Quarter: 2012Q3

REPORT INFORMATION
  Report Type: 
  Country: None (occurrence: None)
  Receive Date: 20120723
  Receipt Date: 20120712
  Transmission Date: 20120928
  Serious: Yes (Hospitalization, Disabling, Other)
  Sender: FDA-Public Use
  Company Number: GB-MPIJNJ-2012-03963

PATIENT

DRUGS (6)
  1. BUTRANS [Concomitant]
     Indication: PAIN
     Dosage: UNK MG, UNK
  2. GABAPENTIN [Concomitant]
     Indication: PAIN
     Dosage: 40 MG, UNK
  3. DIAZEPAM [Concomitant]
     Indication: PAIN
     Dosage: 2 MG, UNK
  4. VELCADE [Suspect]
     Indication: MULTIPLE MYELOMA
     Dosage: 2.3 MG, UNK
     Route: 042
     Dates: start: 20111205, end: 20120326
  5. AMITRIPTYLINE HCL [Concomitant]
     Indication: PAIN
     Dosage: 35 MG, UNK
  6. DIAZEPAM [Concomitant]
     Dosage: UNK

REACTIONS (3)
  - MOBILITY DECREASED [None]
  - NEUROPATHY PERIPHERAL [None]
  - PAIN [None]
